FAERS Safety Report 9766355 (Version 1)
Quarter: 2013Q4

REPORT INFORMATION
  Report Type: Spontaneous
  Country: US (occurrence: US)
  Receive Date: 20131217
  Receipt Date: 20131217
  Transmission Date: 20140711
  Serious: No
  Sender: FDA-Public Use
  Company Number: US-GLAXOSMITHKLINE-A1026467A

PATIENT
  Sex: Male
  Weight: 77.3 kg

DRUGS (5)
  1. VOTRIENT [Suspect]
     Indication: RENAL CANCER METASTATIC
     Dosage: 800MG PER DAY
     Route: 048
  2. CALCIUM [Concomitant]
  3. LORTAB [Concomitant]
  4. COLACE [Concomitant]
  5. ATIVAN [Concomitant]

REACTIONS (2)
  - Asthenia [Unknown]
  - Hair colour changes [Unknown]
